FAERS Safety Report 17363327 (Version 1)
Quarter: 2020Q1

REPORT INFORMATION
  Report Type: Spontaneous
  Country: US (occurrence: US)
  Receive Date: 20200203
  Receipt Date: 20200203
  Transmission Date: 20200409
  Serious: No
  Sender: FDA-Public Use
  Company Number: US-BAYER-2020-015824

PATIENT
  Age: 91 Year
  Sex: Female

DRUGS (5)
  1. PEPSIDOL [Concomitant]
     Dosage: 20 MG
  2. MIRALAX [Suspect]
     Active Substance: POLYETHYLENE GLYCOL 3350
     Indication: GASTROINTESTINAL DISORDER
     Dosage: 17 G, QD
     Route: 048
  3. BAYER LOW DOSE [Concomitant]
     Active Substance: ASPIRIN
     Dosage: UNK
  4. MORFIN [FENOVERINE] [Concomitant]
     Active Substance: FENOVERINE
  5. CALTRATE [Concomitant]
     Active Substance: CALCIUM CARBONATE

REACTIONS (1)
  - Abdominal pain upper [Unknown]
